FAERS Safety Report 26179424 (Version 1)
Quarter: 2025Q4

REPORT INFORMATION
  Report Type: Spontaneous
  Country: US (occurrence: US)
  Receive Date: 20251219
  Receipt Date: 20251219
  Transmission Date: 20260118
  Serious: No
  Sender: ELI LILLY AND COMPANY
  Company Number: US-ELI_LILLY_AND_COMPANY-US202512007984

PATIENT
  Age: 60 Year
  Sex: Female

DRUGS (1)
  1. VERZENIO [Suspect]
     Active Substance: ABEMACICLIB
     Indication: Breast cancer female
     Dosage: 150 MG, BID
     Route: 048
     Dates: start: 20230714

REACTIONS (7)
  - Hot flush [Not Recovered/Not Resolved]
  - Migraine [Unknown]
  - Arthralgia [Not Recovered/Not Resolved]
  - Dehydration [Unknown]
  - Dizziness [Recovering/Resolving]
  - Blood creatinine increased [Unknown]
  - Diarrhoea [Unknown]
